FAERS Safety Report 7795261-5 (Version None)
Quarter: 2011Q4

REPORT INFORMATION
  Report Type: 
  Country: None (occurrence: None)
  Receive Date: 20111004
  Receipt Date: 20110926
  Transmission Date: 20120403
  Serious: Yes (Other)
  Sender: FDA-Public Use
  Company Number: US-GENZYME-CERZ-1002256

PATIENT

DRUGS (2)
  1. VPRIV [Suspect]
     Indication: GAUCHER'S DISEASE
  2. CEREZYME [Suspect]
     Indication: GAUCHER'S DISEASE
     Dosage: UNK
     Dates: end: 20100501

REACTIONS (1)
  - MULTIPLE MYELOMA [None]
